FAERS Safety Report 4558679-X (Version None)
Quarter: 2005Q1

REPORT INFORMATION
  Report Type: 
  Country: None (occurrence: None)
  Receive Date: 20050121
  Receipt Date: 20050121
  Transmission Date: 20050727
  Serious: Yes (Other)
  Sender: FDA-Public Use
  Company Number: None

PATIENT
  Sex: Female
  Weight: 133 kg

DRUGS (1)
  1. DAPTOMYCIN [Suspect]
     Indication: CELLULITIS
     Dosage: 550 MG Q 24 H
     Dates: start: 20041228, end: 20050120

REACTIONS (1)
  - BLOOD CREATININE INCREASED [None]
